FAERS Safety Report 22180348 (Version 1)
Quarter: 2023Q2

REPORT INFORMATION
  Report Type: Spontaneous
  Country: GB (occurrence: GB)
  Receive Date: 20230406
  Receipt Date: 20230406
  Transmission Date: 20230721
  Serious: Yes (Other)
  Sender: FDA-Public Use
  Company Number: GB-Bristol Laboratories Ltd-BLL202303-000025

PATIENT
  Sex: Male
  Weight: 72.9 kg

DRUGS (2)
  1. SIMVASTATIN [Suspect]
     Active Substance: SIMVASTATIN
     Indication: Product used for unknown indication
     Dosage: DOUBLE DOSING OF SIMVASTATIN/ DISCONTINUED 4 MONTHS AGO
  2. DIHYDROCODEINE [Suspect]
     Active Substance: DIHYDROCODEINE
     Indication: Myalgia
     Dosage: 1-2 TABLETS AS NECESSARY/ INITIATED 1-2 WEEKS AGO/ 1-3 TIMES A DAY, 5-16 TABLET TILL NOW
     Dates: end: 20230308

REACTIONS (10)
  - Rhabdomyolysis [Not Recovered/Not Resolved]
  - Decreased appetite [Not Recovered/Not Resolved]
  - Abnormal faeces [Not Recovered/Not Resolved]
  - Faeces discoloured [Not Recovered/Not Resolved]
  - Frequent bowel movements [Not Recovered/Not Resolved]
  - Flatulence [Not Recovered/Not Resolved]
  - Pruritus [Not Recovered/Not Resolved]
  - Abdominal pain [Not Recovered/Not Resolved]
  - Therapy partial responder [Unknown]
  - Overdose [Unknown]
